FAERS Safety Report 10270970 (Version 1)
Quarter: 2014Q3

REPORT INFORMATION
  Report Type: Spontaneous
  Country: JP (occurrence: JP)
  Receive Date: 20140701
  Receipt Date: 20140701
  Transmission Date: 20150326
  Serious: Yes (Hospitalization)
  Sender: FDA-Public Use
  Company Number: JP-GLAXOSMITHKLINE-B1008663A

PATIENT
  Age: 80 Year
  Sex: Male

DRUGS (1)
  1. VALTREX [Suspect]
     Active Substance: VALACYCLOVIR HYDROCHLORIDE
     Indication: HERPES ZOSTER
     Dosage: 1000MG THREE TIMES PER DAY
     Route: 048
     Dates: start: 20140619, end: 20140623

REACTIONS (5)
  - Asthenia [Not Recovered/Not Resolved]
  - Muscular weakness [Unknown]
  - Depressed level of consciousness [Unknown]
  - Altered state of consciousness [Not Recovered/Not Resolved]
  - Toxic encephalopathy [Unknown]

NARRATIVE: CASE EVENT DATE: 20140621
